FAERS Safety Report 14964138 (Version 1)
Quarter: 2018Q2

REPORT INFORMATION
  Report Type: Report from Study
  Country: US (occurrence: US)
  Receive Date: 20180601
  Receipt Date: 20180601
  Transmission Date: 20180711
  Serious: Yes (Hospitalization)
  Sender: FDA-Public Use
  Company Number: US-MALLINCKRODT-T201802122

PATIENT
  Sex: Female
  Weight: 89 kg

DRUGS (1)
  1. REPOSITORY CORTICOTROPIN INJECTION [Suspect]
     Active Substance: CORTICOTROPIN
     Indication: SYSTEMIC LUPUS ERYTHEMATOSUS
     Dosage: 80 UNITS 3 TIMES WEEKLY
     Route: 058
     Dates: start: 201804, end: 20180502

REACTIONS (3)
  - Gastritis [Unknown]
  - Hypertension [Unknown]
  - Hypersensitivity [Unknown]
